FAERS Safety Report 7681002-9 (Version None)
Quarter: 2011Q3

REPORT INFORMATION
  Report Type: 
  Country: None (occurrence: None)
  Receive Date: 20110812
  Receipt Date: 20110805
  Transmission Date: 20111222
  Serious: Yes (Other)
  Sender: FDA-Public Use
  Company Number: JP-JNJFOC-20110802327

PATIENT
  Sex: Female

DRUGS (4)
  1. CELESTAMINE TAB [Concomitant]
     Route: 065
     Dates: start: 20110722
  2. LEVOFLOXACIN [Suspect]
     Indication: ACUTE SINUSITIS
     Dosage: 2 TABLETS OF 250 MG ONCE DAILY
     Route: 048
     Dates: start: 20110722, end: 20110722
  3. RABEPRAZOLE SODIUM [Concomitant]
     Route: 065
     Dates: start: 20110722
  4. LEVOFLOXACIN [Suspect]
     Indication: OTITIS MEDIA
     Dosage: 2 TABLETS OF 250 MG ONCE DAILY
     Route: 048
     Dates: start: 20110722, end: 20110722

REACTIONS (2)
  - EYELID OEDEMA [None]
  - GENERALISED ERYTHEMA [None]
